FAERS Safety Report 6339378-0 (Version None)
Quarter: 2009Q3

REPORT INFORMATION
  Report Type: 
  Country: None (occurrence: None)
  Receive Date: 20090828
  Receipt Date: 20090225
  Transmission Date: 20100115
  Serious: Yes (Other)
  Sender: FDA-Public Use
  Company Number: KADN20090034

PATIENT
  Sex: Male

DRUGS (2)
  1. KADIAN [Suspect]
     Indication: DRUG USE FOR UNKNOWN INDICATION
  2. NALTREXONE HYDROCHLORIDE [Suspect]
     Indication: DRUG USE FOR UNKNOWN INDICATION

REACTIONS (7)
  - ANGIOEDEMA [None]
  - ASTHENIA [None]
  - DYSPHAGIA [None]
  - DYSPNOEA [None]
  - HYPERSENSITIVITY [None]
  - NAUSEA [None]
  - PALATAL OEDEMA [None]
